FAERS Safety Report 15172633 (Version 2)
Quarter: 2018Q3

REPORT INFORMATION
  Report Type: Spontaneous
  Country: BR (occurrence: BR)
  Receive Date: 20180720
  Receipt Date: 20180809
  Transmission Date: 20181010
  Serious: Yes (Life-Threatening, Other)
  Sender: FDA-Public Use
  Company Number: BR-LEO PHARMA-309940

PATIENT
  Sex: Male

DRUGS (3)
  1. PICATO [Suspect]
     Active Substance: INGENOL MEBUTATE
     Indication: ACTINIC KERATOSIS
     Route: 061
     Dates: start: 20180711, end: 20180711
  2. DAFLON [Concomitant]
     Indication: ANGIOPATHY
  3. SIMVASTATIN. [Concomitant]
     Active Substance: SIMVASTATIN
     Indication: BLOOD CHOLESTEROL INCREASED

REACTIONS (5)
  - Dyspnoea [Recovering/Resolving]
  - Application site erythema [Recovering/Resolving]
  - Conjunctival hyperaemia [Recovering/Resolving]
  - Application site scab [Recovering/Resolving]
  - Application site swelling [Recovered/Resolved]

NARRATIVE: CASE EVENT DATE: 20180711
